FAERS Safety Report 14570200 (Version 1)
Quarter: 2018Q1

REPORT INFORMATION
  Report Type: Report from Study
  Country: US (occurrence: US)
  Receive Date: 20180225
  Receipt Date: 20180225
  Transmission Date: 20180509
  Serious: Yes (Hospitalization)
  Sender: FDA-Public Use
  Company Number: US-EXELIXIS-CABO-18012627

PATIENT
  Age: 68 Year
  Sex: Male

DRUGS (6)
  1. MORPHINE SULFATE. [Concomitant]
     Active Substance: MORPHINE SULFATE
  2. CABOMETYX [Suspect]
     Active Substance: CABOZANTINIB S-MALATE
     Indication: BENIGN PROSTATIC HYPERPLASIA
     Dosage: 60 MG, QD
     Route: 048
     Dates: start: 20180105
  3. LIDOCAINE. [Concomitant]
     Active Substance: LIDOCAINE
  4. ASPIRIN. [Concomitant]
     Active Substance: ASPIRIN
  5. DOCUSATE SODIUM. [Concomitant]
     Active Substance: DOCUSATE SODIUM
  6. NEXIUM [Concomitant]
     Active Substance: ESOMEPRAZOLE MAGNESIUM

REACTIONS (6)
  - Dysgeusia [Unknown]
  - Off label use [Unknown]
  - Fall [Unknown]
  - Fatigue [Unknown]
  - Unevaluable event [Unknown]
  - Decreased appetite [Unknown]

NARRATIVE: CASE EVENT DATE: 201801
